FAERS Safety Report 11234907 (Version 2)
Quarter: 2015Q3

REPORT INFORMATION
  Report Type: Spontaneous
  Country: FR (occurrence: FR)
  Receive Date: 20150702
  Receipt Date: 20150713
  Transmission Date: 20151125
  Serious: Yes (Life-Threatening, Hospitalization)
  Sender: FDA-Public Use
  Company Number: FR-ELI_LILLY_AND_COMPANY-FR201506009576

PATIENT
  Sex: Male

DRUGS (9)
  1. ALDACTAZINE [Suspect]
     Active Substance: ALTHIAZIDE\SPIRONOLACTONE
     Indication: PRODUCT USED FOR UNKNOWN INDICATION
     Dosage: 1 DF, QD
     Route: 065
  2. XATRAL [Suspect]
     Active Substance: ALFUZOSIN
     Indication: BENIGN PROSTATIC HYPERPLASIA
     Dosage: 10 MG, QD
     Route: 065
     Dates: start: 20150608, end: 20150609
  3. CELECTOL [Suspect]
     Active Substance: CELIPROLOL HYDROCHLORIDE
     Indication: PRODUCT USED FOR UNKNOWN INDICATION
     Dosage: 200 MG, QD
     Route: 065
  4. LEVOTHYROX [Concomitant]
     Active Substance: LEVOTHYROXINE
     Indication: PRODUCT USED FOR UNKNOWN INDICATION
     Dosage: 10 UG, QD
  5. XANAX [Suspect]
     Active Substance: ALPRAZOLAM
     Indication: DEPRESSION
     Dosage: UNK, UNKNOWN
     Route: 065
     Dates: start: 201503, end: 20150609
  6. PROZAC [Suspect]
     Active Substance: FLUOXETINE HYDROCHLORIDE
     Indication: DEPRESSION
     Dosage: 20 MG, QD
     Route: 048
     Dates: start: 201505, end: 20150609
  7. PLAVIX [Concomitant]
     Active Substance: CLOPIDOGREL BISULFATE
     Indication: PRODUCT USED FOR UNKNOWN INDICATION
     Dosage: 50 MG, QD
     Route: 065
  8. ALFUZOSINE [Concomitant]
     Active Substance: ALFUZOSIN HYDROCHLORIDE
     Indication: URINARY TRACT INFECTION
     Dosage: UNK, UNKNOWN
     Route: 065
  9. CIPROFLOXACINO ACOST [Suspect]
     Active Substance: CIPROFLOXACIN HYDROCHLORIDE
     Indication: URINARY TRACT INFECTION
     Dosage: 500 MG, BID
     Route: 065
     Dates: start: 20150608, end: 20150609

REACTIONS (21)
  - Hypokalaemia [Recovering/Resolving]
  - Motor dysfunction [Unknown]
  - Proteinuria [Recovering/Resolving]
  - Coma [Recovering/Resolving]
  - Hypomagnesaemia [Unknown]
  - VIIth nerve paralysis [Unknown]
  - Hypochloraemia [Unknown]
  - Urine abnormality [Recovered/Resolved]
  - Eye movement disorder [Unknown]
  - Aspartate aminotransferase increased [Unknown]
  - Blood creatine phosphokinase increased [Unknown]
  - C-reactive protein increased [Unknown]
  - Nystagmus [Unknown]
  - Hypophosphataemia [Unknown]
  - Hyperbilirubinaemia [Unknown]
  - Tongue biting [Recovered/Resolved]
  - Aspiration [Unknown]
  - Inappropriate antidiuretic hormone secretion [Recovering/Resolving]
  - Leukocytosis [Unknown]
  - Suprapubic pain [Unknown]
  - Pyrexia [Unknown]
